FAERS Safety Report 18979650 (Version 1)
Quarter: 2021Q1

REPORT INFORMATION
  Report Type: Spontaneous
  Country: US (occurrence: US)
  Receive Date: 20210308
  Receipt Date: 20210308
  Transmission Date: 20210420
  Serious: Yes (Other)
  Sender: FDA-Public Use
  Company Number: NVSC2021US048346

PATIENT
  Sex: Female

DRUGS (1)
  1. XIIDRA [Suspect]
     Active Substance: LIFITEGRAST
     Indication: PRODUCT USED FOR UNKNOWN INDICATION
     Dosage: 2 DRP, QD EACH EYE
     Route: 047

REACTIONS (5)
  - Visual impairment [Unknown]
  - Arthritis [Unknown]
  - Product packaging quantity issue [Unknown]
  - Product container issue [Unknown]
  - Blindness [Unknown]
